FAERS Safety Report 25125624 (Version 3)
Quarter: 2025Q3

REPORT INFORMATION
  Report Type: Spontaneous
  Country: CN (occurrence: CN)
  Receive Date: 20250326
  Receipt Date: 20250704
  Transmission Date: 20251021
  Serious: Yes (Death, Other)
  Sender: NOVARTIS
  Company Number: CN-002147023-NVSC2025CN049968

PATIENT
  Age: 69 Year
  Sex: Male

DRUGS (1)
  1. GLIVEC [Suspect]
     Active Substance: IMATINIB MESYLATE
     Indication: Chronic myeloid leukaemia
     Route: 048
     Dates: start: 20170921

REACTIONS (4)
  - Death [Fatal]
  - Parkinson^s disease [Unknown]
  - Apallic syndrome [Unknown]
  - Pyrexia [Unknown]
